FAERS Safety Report 23993715 (Version 2)
Quarter: 2025Q3

REPORT INFORMATION
  Report Type: Spontaneous
  Country: US (occurrence: US)
  Receive Date: 20240620
  Receipt Date: 20250908
  Transmission Date: 20251020
  Serious: Yes (Other)
  Sender: BAYER HEALTHCARE PHARMACEUTICALS INC.
  Company Number: US-BAYER-2024A085715

PATIENT
  Age: 29 Year
  Sex: Male

DRUGS (3)
  1. JIVI [Suspect]
     Active Substance: DAMOCTOCOG ALFA PEGOL
     Indication: Factor VIII deficiency
     Dosage: 3000 U, BIW, AS NEEDED
     Route: 042
     Dates: start: 202206
  2. JIVI [Suspect]
     Active Substance: DAMOCTOCOG ALFA PEGOL
     Indication: Factor VIII deficiency
     Dosage: JIVI 1000 IU: INFUSE~ 3000 UNITS
     Route: 042
     Dates: start: 20250409
  3. JIVI [Suspect]
     Active Substance: DAMOCTOCOG ALFA PEGOL
     Indication: Factor VIII deficiency
     Dosage: JIVI 2000 IU: INFUSE~ 3000 UNITS
     Route: 042
     Dates: start: 20250409

REACTIONS (3)
  - Dizziness [None]
  - Haemarthrosis [None]
  - Haemorrhage [None]
